FAERS Safety Report 17657455 (Version 1)
Quarter: 2020Q2

REPORT INFORMATION
  Report Type: Spontaneous
  Country: FR (occurrence: FR)
  Receive Date: 20200410
  Receipt Date: 20200410
  Transmission Date: 20200713
  Serious: Yes (Other)
  Sender: FDA-Public Use
  Company Number: FR-ARRAY-2020-07299

PATIENT

DRUGS (12)
  1. BRAFTOVI [Suspect]
     Active Substance: ENCORAFENIB
     Dosage: 200 MG, QD (1/DAY)
     Route: 048
     Dates: start: 20200323
  2. OXYNORM [Concomitant]
     Active Substance: OXYCODONE HYDROCHLORIDE
     Indication: BACK PAIN
     Dosage: UNK
     Dates: start: 20200310, end: 20200316
  3. MEKTOVI [Suspect]
     Active Substance: BINIMETINIB
     Dosage: 60 MG, DAILY
     Route: 048
     Dates: start: 20200323
  4. KEPPRA [Concomitant]
     Active Substance: LEVETIRACETAM
     Indication: PRODUCT USED FOR UNKNOWN INDICATION
     Dosage: 2 DF DAILY
     Dates: start: 20200109
  5. LYRICA [Concomitant]
     Active Substance: PREGABALIN
     Indication: BACK PAIN
     Dosage: 2 DF, QD (1/DAY)
     Dates: start: 20200313, end: 20200328
  6. OXYCONTIN [Concomitant]
     Active Substance: OXYCODONE HYDROCHLORIDE
     Indication: BACK PAIN
     Dosage: 2 DF, QD (1/DAY)
     Dates: start: 20200310, end: 20200316
  7. VALACICLOVIR [Concomitant]
     Active Substance: VALACYCLOVIR HYDROCHLORIDE
     Indication: FACIAL PARALYSIS
     Dosage: 2 DF, EVERY 8 HOURS
     Dates: start: 20200315, end: 20200325
  8. MEKTOVI [Suspect]
     Active Substance: BINIMETINIB
     Indication: PERITONEAL CARCINOMA METASTATIC
     Dosage: 45 MG, BID (2/DAY)
     Dates: start: 20200110, end: 20200310
  9. BRAFTOVI [Suspect]
     Active Substance: ENCORAFENIB
     Indication: PERITONEAL CARCINOMA METASTATIC
     Dosage: 450 MG, QD (1/DAY)
     Route: 048
     Dates: start: 20200110, end: 20200310
  10. CORTANCYL [Concomitant]
     Active Substance: PREDNISONE
     Indication: PRODUCT USED FOR UNKNOWN INDICATION
     Dosage: UNK
     Dates: start: 20200109
  11. OMEPRAZOL [OMEPRAZOLE SODIUM] [Concomitant]
     Indication: PRODUCT USED FOR UNKNOWN INDICATION
     Dosage: 1 DF DAILY
     Dates: start: 20200109
  12. PARACETAMOL [Concomitant]
     Active Substance: ACETAMINOPHEN
     Indication: PRODUCT USED FOR UNKNOWN INDICATION
     Dosage: AS NEEDED

REACTIONS (8)
  - Heart rate increased [Unknown]
  - Insomnia [Recovered/Resolved]
  - Constipation [Unknown]
  - Product use in unapproved indication [Unknown]
  - Blood pressure decreased [Unknown]
  - Transaminases increased [Recovering/Resolving]
  - Cardiac failure [Unknown]
  - Drug interaction [Unknown]

NARRATIVE: CASE EVENT DATE: 202001
